FAERS Safety Report 8495773-5 (Version None)
Quarter: 2012Q3

REPORT INFORMATION
  Report Type: 
  Country: None (occurrence: None)
  Receive Date: 20120709
  Receipt Date: 20120704
  Transmission Date: 20120928
  Serious: Yes (Other)
  Sender: FDA-Public Use
  Company Number: JP-ROCHE-GNE321432

PATIENT
  Sex: Male

DRUGS (13)
  1. NEOPHAGEN [Concomitant]
  2. LUCENTIS [Suspect]
     Indication: AGE-RELATED MACULAR DEGENERATION
     Dosage: 0.05 ML, UNKNOWN
     Route: 050
     Dates: start: 20090914
  3. KARY UNI [Concomitant]
  4. LOSARTAN POTASSIUM [Concomitant]
  5. ROCORNAL [Concomitant]
  6. LUCENTIS [Suspect]
     Dates: start: 20100624
  7. ROCORNAL [Concomitant]
  8. TATHION [Concomitant]
  9. LUCENTIS [Suspect]
     Dates: start: 20100527
  10. VISUDYNE [Concomitant]
     Dates: start: 20090601, end: 20110902
  11. CILNIDIPINE [Concomitant]
  12. LUCENTIS [Suspect]
     Dates: start: 20110621
  13. VIGAMOX [Concomitant]
     Dates: start: 20090901, end: 20110601

REACTIONS (1)
  - HYPERTENSION [None]
